FAERS Safety Report 25617720 (Version 3)
Quarter: 2025Q3

REPORT INFORMATION
  Report Type: Spontaneous
  Country: US (occurrence: US)
  Receive Date: 20250729
  Receipt Date: 20250929
  Transmission Date: 20251020
  Serious: Yes (Hospitalization, Other)
  Sender: PFIZER
  Company Number: US-MLMSERVICE-20250716-PI581917-00166-1

PATIENT
  Age: 73 Year
  Sex: Male

DRUGS (4)
  1. GENTAMICIN SULFATE [Suspect]
     Active Substance: GENTAMICIN SULFATE
     Indication: Endocarditis bacterial
     Dosage: 60 MG, 1X/DAY (STARTED ON HOSPITAL DAY 8)
     Route: 042
     Dates: start: 2024, end: 2024
  2. GENTAMICIN SULFATE [Suspect]
     Active Substance: GENTAMICIN SULFATE
     Indication: Lactobacillus bacteraemia
  3. AMPICILLIN [Concomitant]
     Active Substance: AMPICILLIN
     Indication: Endocarditis bacterial
     Dates: start: 2024, end: 2024
  4. AMPICILLIN [Concomitant]
     Active Substance: AMPICILLIN
     Indication: Lactobacillus bacteraemia

REACTIONS (2)
  - Renal impairment [Unknown]
  - Off label use [Unknown]

NARRATIVE: CASE EVENT DATE: 20240101
